FAERS Safety Report 9722228 (Version 1)
Quarter: 2013Q4

REPORT INFORMATION
  Report Type: Spontaneous
  Country: US (occurrence: US)
  Receive Date: 20131202
  Receipt Date: 20131202
  Transmission Date: 20140711
  Serious: No
  Sender: FDA-Public Use
  Company Number: US-009507513-1311USA004286

PATIENT
  Age: 93 Year
  Sex: Female

DRUGS (3)
  1. AZASITE [Suspect]
     Indication: LACRIMATION INCREASED
     Dosage: 1 DROP IN EACH EYE, DAILY FOR 14 DAYS
     Route: 047
     Dates: start: 20130916
  2. COREG [Concomitant]
  3. PLAVIX [Concomitant]

REACTIONS (2)
  - Drug dose omission [Unknown]
  - Product packaging quantity issue [Unknown]
